FAERS Safety Report 10474912 (Version 3)
Quarter: 2015Q4

REPORT INFORMATION
  Report Type: Spontaneous
  Country: GB (occurrence: GB)
  Receive Date: 20140925
  Receipt Date: 20151005
  Transmission Date: 20160304
  Serious: Yes (Hospitalization)
  Sender: FDA-Public Use
  Company Number: GB-BIOGENIDEC-2014BI096364

PATIENT
  Age: 24 Year
  Sex: Female

DRUGS (1)
  1. AVONEX [Suspect]
     Active Substance: INTERFERON BETA-1A
     Indication: PRODUCT USED FOR UNKNOWN INDICATION
     Route: 030
     Dates: start: 20140908

REACTIONS (3)
  - Hypersensitivity [Unknown]
  - Palpitations [Unknown]
  - Influenza like illness [Unknown]

NARRATIVE: CASE EVENT DATE: 20140908
